FAERS Safety Report 7327050-X (Version None)
Quarter: 2011Q1

REPORT INFORMATION
  Report Type: 
  Country: None (occurrence: None)
  Receive Date: 20110223
  Receipt Date: 20110208
  Transmission Date: 20110831
  Serious: Yes (Hospitalization, Other)
  Sender: FDA-Public Use
  Company Number: 2011ZX000045

PATIENT
  Age: 60 Year
  Sex: Female
  Weight: 57.1532 kg

DRUGS (11)
  1. OXYCODONE HCL [Concomitant]
  2. CYMBALTA [Concomitant]
  3. ESTRADIOL [Concomitant]
  4. DEMEROL [Concomitant]
  5. FIORICET W/ CODEINE [Concomitant]
  6. PHENERGAN HCL [Concomitant]
  7. RESTORIL /00393701/ [Concomitant]
  8. SUMAVEL DOSEPRO [Suspect]
     Indication: MIGRAINE
     Dates: start: 20100101
  9. FIORINAL W/CODEINE [Concomitant]
  10. FENTANYL [Concomitant]
  11. LIDODERM [Concomitant]

REACTIONS (10)
  - HEADACHE [None]
  - INJECTION SITE HAEMATOMA [None]
  - INJECTION SITE SWELLING [None]
  - BLOOD ALKALINE PHOSPHATASE INCREASED [None]
  - INTRACRANIAL ANEURYSM [None]
  - HYPOAESTHESIA [None]
  - ASPARTATE AMINOTRANSFERASE INCREASED [None]
  - INJECTION SITE PAIN [None]
  - ACCIDENTAL EXPOSURE [None]
  - ALANINE AMINOTRANSFERASE INCREASED [None]
